FAERS Safety Report 5685262-5 (Version None)
Quarter: 2008Q1

REPORT INFORMATION
  Report Type: 
  Country: None (occurrence: None)
  Receive Date: 20080328
  Receipt Date: 20080317
  Transmission Date: 20080703
  Serious: No
  Sender: FDA-Public Use
  Company Number: AR-PFIZER INC-2008020986

PATIENT
  Sex: Female
  Weight: 68 kg

DRUGS (2)
  1. LYRICA [Suspect]
     Indication: RADICULAR PAIN
     Route: 048
  2. ZOLPIDEM [Concomitant]
     Route: 048

REACTIONS (4)
  - DYSARTHRIA [None]
  - GAIT DISTURBANCE [None]
  - NAUSEA [None]
  - VOMITING [None]
